FAERS Safety Report 4438403-1 (Version None)
Quarter: 2004Q3

REPORT INFORMATION
  Report Type: 
  Country: None (occurrence: None)
  Receive Date: 20040831
  Receipt Date: 20040413
  Transmission Date: 20050211
  Serious: Yes (Other)
  Sender: FDA-Public Use
  Company Number: PHBS2004CA05085

PATIENT
  Age: 42 Year
  Sex: Female

DRUGS (3)
  1. ZELNORM [Suspect]
     Indication: IRRITABLE BOWEL SYNDROME
     Dosage: 12 MG/DAY
     Route: 048
     Dates: start: 20040401
  2. NEURONTIN [Concomitant]
  3. DIURETICS [Concomitant]

REACTIONS (3)
  - DYSPNOEA [None]
  - HYPOVENTILATION [None]
  - INSOMNIA [None]
